FAERS Safety Report 9474903 (Version 1)
Quarter: 2013Q3

REPORT INFORMATION
  Report Type: Spontaneous
  Country: DK (occurrence: DK)
  Receive Date: 20130823
  Receipt Date: 20130823
  Transmission Date: 20140515
  Serious: Yes (Hospitalization)
  Sender: FDA-Public Use
  Company Number: DK-ALLERGAN-1312487US

PATIENT
  Age: 82 Year
  Sex: Male

DRUGS (7)
  1. TROSPIUM CHLORIDE UNK [Suspect]
     Indication: INCONTINENCE
     Dosage: 20 MG, QD
     Route: 048
     Dates: end: 20130710
  2. CALCIUM [Concomitant]
  3. CLOPIDOGREL [Concomitant]
  4. MAGNYL [Concomitant]
  5. MOVICOL [Concomitant]
  6. PANTOPRAZOL [Concomitant]
  7. PINEX [Concomitant]

REACTIONS (2)
  - Hyponatraemia [Unknown]
  - Urinary retention [Unknown]
